FAERS Safety Report 9643364 (Version 1)
Quarter: 2013Q4

REPORT INFORMATION
  Report Type: Spontaneous
  Country: DE (occurrence: JP)
  Receive Date: 20131024
  Receipt Date: 20131024
  Transmission Date: 20140711
  Serious: Yes (Hospitalization)
  Sender: FDA-Public Use
  Company Number: JP-FRI-1000050502

PATIENT
  Age: 90 Year
  Sex: Female

DRUGS (1)
  1. MEMANTINE [Suspect]
     Dosage: 20 MG
     Dates: start: 201301

REACTIONS (2)
  - Anaemia [Recovering/Resolving]
  - Gastric ulcer [Recovering/Resolving]
